FAERS Safety Report 9611940 (Version 1)
Quarter: 2013Q4

REPORT INFORMATION
  Report Type: Spontaneous
  Country: US (occurrence: US)
  Receive Date: 20131010
  Receipt Date: 20131010
  Transmission Date: 20140711
  Serious: Yes (Hospitalization)
  Sender: FDA-Public Use
  Company Number: US-JNJFOC-20131001786

PATIENT
  Sex: Female
  Weight: 77.11 kg

DRUGS (2)
  1. REMICADE [Suspect]
     Indication: RHEUMATOID ARTHRITIS
     Dosage: STARTED BEFORE COUPLE OF YEARS
     Route: 042
  2. REMICADE [Suspect]
     Indication: FIBROMYALGIA
     Dosage: STARTED BEFORE COUPLE OF YEARS
     Route: 042

REACTIONS (3)
  - Cardiac disorder [Unknown]
  - Rotator cuff syndrome [Unknown]
  - Off label use [Unknown]
